FAERS Safety Report 24329508 (Version 2)
Quarter: 2024Q4

REPORT INFORMATION
  Report Type: Spontaneous
  Country: CA (occurrence: CA)
  Receive Date: 20240917
  Receipt Date: 20241118
  Transmission Date: 20250114
  Serious: Yes (Hospitalization, Other)
  Sender: PURDUE
  Company Number: CA-HEALTHCANVIG-E2B_07261966

PATIENT
  Age: 45 Year
  Sex: Male

DRUGS (4)
  1. MORPHINE SULFATE [Suspect]
     Active Substance: MORPHINE SULFATE
     Indication: Biliary colic
     Dosage: UNK
     Route: 065
  2. CONTRAVE [Suspect]
     Active Substance: BUPROPION HYDROCHLORIDE\NALTREXONE HYDROCHLORIDE
     Indication: Weight control
     Dosage: UNK
     Route: 048
  3. CONTRAVE [Suspect]
     Active Substance: BUPROPION HYDROCHLORIDE\NALTREXONE HYDROCHLORIDE
     Indication: Weight control
     Dosage: UNK
     Route: 048
  4. LIRAGLUTIDE [Concomitant]
     Active Substance: LIRAGLUTIDE
     Indication: Weight control
     Dosage: 1 EVERY 1 DAYS
     Route: 058

REACTIONS (10)
  - Abnormal loss of weight [Recovered/Resolved]
  - Biliary colic [Recovered/Resolved]
  - Cholelithiasis [Recovered/Resolved]
  - Contraindicated product administered [Recovered/Resolved]
  - Contraindicated product prescribed [Recovered/Resolved]
  - Intercepted product prescribing error [Recovered/Resolved]
  - Labelled drug-drug interaction issue [Recovered/Resolved]
  - Presyncope [Recovered/Resolved]
  - Vision blurred [Recovered/Resolved]
  - Weight increased [Recovered/Resolved]
